FAERS Safety Report 4338775-2 (Version None)
Quarter: 2004Q2

REPORT INFORMATION
  Report Type: 
  Country: None (occurrence: None)
  Receive Date: 20040409
  Receipt Date: 20040324
  Transmission Date: 20050107
  Serious: Yes (Death)
  Sender: FDA-Public Use
  Company Number: 8005827

PATIENT
  Age: 30 Year
  Sex: Male

DRUGS (6)
  1. KEPPRA [Suspect]
     Indication: PARTIAL SEIZURES
     Dosage: 500 MG /D PO
     Route: 048
     Dates: start: 20040121, end: 20040123
  2. KEPPRA [Suspect]
     Indication: PARTIAL SEIZURES
     Dosage: 500 MG 2/D PO
     Route: 047
     Dates: start: 20040124, end: 20040126
  3. KEPPRA [Suspect]
     Indication: PARTIAL SEIZURES
     Dosage: 1500 MG PO
     Route: 048
     Dates: start: 20040127, end: 20040129
  4. KEPPRA [Suspect]
     Indication: PARTIAL SEIZURES
     Dosage: 1000 MG 2/D PO
     Route: 048
     Dates: start: 20040130, end: 20040302
  5. DILANTIN [Concomitant]
  6. MULTI-VITAMINS [Concomitant]

REACTIONS (1)
  - SUDDEN DEATH [None]
